FAERS Safety Report 10598387 (Version 1)
Quarter: 2014Q4

REPORT INFORMATION
  Report Type: Spontaneous
  Country: DE (occurrence: DE)
  Receive Date: 20141121
  Receipt Date: 20141121
  Transmission Date: 20150529
  Serious: Yes (Death, Hospitalization)
  Sender: FDA-Public Use
  Company Number: DE-MYLANLABS-2014M1011270

PATIENT

DRUGS (1)
  1. ALENDRONATE SODIUM. [Suspect]
     Active Substance: ALENDRONATE SODIUM
     Indication: OSTEOPOROSIS
     Dosage: 70MG WEEKLY
     Route: 048

REACTIONS (5)
  - Osteonecrosis of jaw [Unknown]
  - Multi-organ failure [Fatal]
  - Septic embolus [Unknown]
  - Abscess neck [Unknown]
  - Bacterial sepsis [Unknown]
